FAERS Safety Report 4684556-X (Version None)
Quarter: 2005Q2

REPORT INFORMATION
  Report Type: 
  Country: None (occurrence: None)
  Receive Date: 20050603
  Receipt Date: 20040113
  Transmission Date: 20051028
  Serious: Yes (Death)
  Sender: FDA-Public Use
  Company Number: 10125

PATIENT
  Age: 57 Year
  Sex: Female

DRUGS (3)
  1. METHOTREXATE [Suspect]
     Indication: RHEUMATOID ARTHRITIS
     Dosage: 20 MG WEEKLY SC
     Route: 058
     Dates: start: 20020409, end: 20040103
  2. PREDNISONE TAB [Suspect]
     Indication: RHEUMATOID ARTHRITIS
     Dates: start: 20010613, end: 20040103
  3. BEXTRA [Suspect]
     Indication: RHEUMATOID ARTHRITIS
     Dates: end: 20040103

REACTIONS (2)
  - ASPIRATION [None]
  - CARDIO-RESPIRATORY ARREST [None]
